FAERS Safety Report 18349797 (Version 1)
Quarter: 2020Q4

REPORT INFORMATION
  Report Type: Spontaneous
  Country: US (occurrence: US)
  Receive Date: 20201006
  Receipt Date: 20201006
  Transmission Date: 20210114
  Serious: Yes (Life-Threatening, Hospitalization)
  Sender: FDA-Public Use
  Company Number: None

PATIENT
  Age: 68 Year
  Sex: Female
  Weight: 84.9 kg

DRUGS (3)
  1. OLANZAPINE 5 MG PO HS [Concomitant]
  2. APIXABAN [Suspect]
     Active Substance: APIXABAN
     Indication: ATRIAL FIBRILLATION
     Route: 048
     Dates: end: 20200908
  3. METOPROLOL SUCCINATE 50 MG PO DAILY [Concomitant]

REACTIONS (2)
  - Cerebral haemorrhage [None]
  - Brain oedema [None]

NARRATIVE: CASE EVENT DATE: 20200908
